FAERS Safety Report 22257740 (Version 2)
Quarter: 2023Q2

REPORT INFORMATION
  Report Type: Spontaneous
  Country: US (occurrence: US)
  Receive Date: 20230427
  Receipt Date: 20230513
  Transmission Date: 20230721
  Serious: Yes (Hospitalization, Other)
  Sender: FDA-Public Use
  Company Number: US-009507513-2304USA009447

PATIENT
  Sex: Female

DRUGS (23)
  1. JANUVIA [Suspect]
     Active Substance: SITAGLIPTIN PHOSPHATE
     Dosage: 100 UNK
     Route: 048
     Dates: start: 20180925
  2. JANUVIA [Suspect]
     Active Substance: SITAGLIPTIN PHOSPHATE
     Dosage: 50 MILLIGRAM, ONCE
     Route: 048
     Dates: start: 2021
  3. JANUVIA [Suspect]
     Active Substance: SITAGLIPTIN PHOSPHATE
     Dosage: 50 UNK
     Route: 048
     Dates: start: 20210921, end: 20230103
  4. ALPHA LIPOIC ACID [Concomitant]
     Active Substance: .ALPHA.-LIPOIC ACID
     Dosage: UNK
     Dates: start: 20220819
  5. ASPIRIN [Concomitant]
     Active Substance: ASPIRIN
     Dosage: UNK
     Route: 048
     Dates: start: 20220819
  6. CALCITRIOL [Concomitant]
     Active Substance: CALCITRIOL
     Dosage: UNK
     Route: 048
     Dates: start: 20220421
  7. CHITOSANAS [Concomitant]
     Dosage: UNK
     Dates: start: 20220417
  8. CLOPIDOGREL [Concomitant]
     Active Substance: CLOPIDOGREL BISULFATE
     Dosage: 75 MILLIGRAM
     Route: 048
     Dates: start: 20220819
  9. CATAPRES [Concomitant]
     Active Substance: CLONIDINE HYDROCHLORIDE
     Dosage: 0.1 MILLIGRAM
     Route: 048
     Dates: start: 20220317
  10. VITAMIN B12 [Concomitant]
     Active Substance: CYANOCOBALAMIN
     Dosage: UNK
     Route: 030
     Dates: start: 20220309
  11. MIRCERA [Concomitant]
     Active Substance: METHOXY POLYETHYLENE GLYCOL-EPOETIN BETA
     Dosage: UNK
     Route: 058
     Dates: start: 20210312
  12. ZOFRAN [Concomitant]
     Active Substance: ONDANSETRON HYDROCHLORIDE
     Dosage: UNK
     Dates: start: 20220913
  13. CRESTOR [Concomitant]
     Active Substance: ROSUVASTATIN CALCIUM
     Dosage: 20 MILLIGRAM
     Route: 048
     Dates: start: 20221128
  14. RENVELA [Concomitant]
     Active Substance: SEVELAMER CARBONATE
     Dosage: UNK
     Dates: start: 20191004
  15. ROCALTROL [Concomitant]
     Active Substance: CALCITRIOL
     Dosage: 0.25 MILLIGRAM
     Route: 048
     Dates: start: 20220421
  16. .ALPHA.-TOCOPHEROL ACETATE [Concomitant]
     Active Substance: .ALPHA.-TOCOPHEROL ACETATE
     Dosage: UNK
     Route: 048
     Dates: start: 20220417
  17. LEVEMIR [Concomitant]
     Active Substance: INSULIN DETEMIR
     Dosage: UNK
     Dates: start: 20180925
  18. NOVOLIN R [Concomitant]
     Active Substance: INSULIN HUMAN
     Dosage: UNK
     Dates: start: 20180925
  19. HYDROCHLOROTHIAZIDE [Concomitant]
     Active Substance: HYDROCHLOROTHIAZIDE
     Dosage: UNK
     Dates: start: 20180925
  20. LUMIGAN [Concomitant]
     Active Substance: BIMATOPROST
     Dosage: UNK
     Dates: start: 20180925
  21. VITAMIN D3 [Concomitant]
     Active Substance: CHOLECALCIFEROL
     Dosage: UNK
     Dates: start: 20180925
  22. SODIUM BICARBONATE [Concomitant]
     Active Substance: SODIUM BICARBONATE
     Dosage: UNK
     Dates: start: 20180925
  23. ATORVASTATIN [Concomitant]
     Active Substance: ATORVASTATIN
     Dosage: UNK
     Dates: start: 20200925

REACTIONS (40)
  - Renal transplant [Unknown]
  - Carotid artery stenosis [Unknown]
  - Central venous catheterisation [Unknown]
  - Central venous catheterisation [Unknown]
  - End stage renal disease [Unknown]
  - Metabolic encephalopathy [Unknown]
  - Substance-induced psychotic disorder [Unknown]
  - Multiple drug therapy [Unknown]
  - Angina pectoris [Unknown]
  - Immunosuppressant drug level increased [Unknown]
  - Haemorrhagic cerebral infarction [Unknown]
  - Blood glucose increased [Unknown]
  - Product dose omission issue [Unknown]
  - Product use issue [Unknown]
  - Rib fracture [Unknown]
  - Peritoneal catheter insertion [Unknown]
  - Cataract operation [Unknown]
  - Glycosylated haemoglobin abnormal [Unknown]
  - Fall [Unknown]
  - Head injury [Unknown]
  - Drug ineffective [Unknown]
  - Nausea [Unknown]
  - Vomiting [Unknown]
  - Fatigue [Unknown]
  - Chills [Unknown]
  - Malaise [Unknown]
  - Blood calcium decreased [Unknown]
  - Blood glucose increased [Unknown]
  - Blood urea increased [Unknown]
  - Blood sodium decreased [Unknown]
  - Blood phosphorus increased [Unknown]
  - Blood albumin decreased [Unknown]
  - Blood osmolarity increased [Unknown]
  - Neutrophil count increased [Unknown]
  - Lymphocyte count decreased [Unknown]
  - Fluid retention [Unknown]
  - Hypoglycaemia [Unknown]
  - Benign neoplasm of thyroid gland [Unknown]
  - Abdominal pain [Unknown]
  - Blood triglycerides increased [Unknown]

NARRATIVE: CASE EVENT DATE: 20190101
